FAERS Safety Report 8027277-8 (Version None)
Quarter: 2012Q1

REPORT INFORMATION
  Report Type: 
  Country: None (occurrence: None)
  Receive Date: 20120104
  Receipt Date: 20111219
  Transmission Date: 20120608
  Serious: Yes (Other)
  Sender: FDA-Public Use
  Company Number: 2011AP003110

PATIENT
  Age: 49 Year
  Sex: Female

DRUGS (7)
  1. FLUOXETINE HYDROCHLORIDE [Suspect]
     Indication: ANXIETY
     Dates: start: 20110901
  2. FLUOXETINE HYDROCHLORIDE [Suspect]
     Indication: DEPRESSION
     Dates: start: 20110901
  3. CLARITHROMYCIN [Suspect]
     Indication: LOWER RESPIRATORY TRACT INFECTION
  4. TOLTERODINE TARTRATE [Suspect]
     Indication: POLLAKIURIA
     Dosage: 4 MG;PO;QD
     Route: 048
     Dates: start: 20111018, end: 20111019
  5. TOLTERODINE TARTRATE [Suspect]
     Indication: BLADDER IRRITATION
     Dosage: 4 MG;PO;QD
     Route: 048
     Dates: start: 20111018, end: 20111019
  6. AMOXICILLIN [Concomitant]
  7. TOLTERODINE TARTRATE [Concomitant]

REACTIONS (5)
  - ROAD TRAFFIC ACCIDENT [None]
  - POLLAKIURIA [None]
  - DRUG INTERACTION [None]
  - EPILEPSY [None]
  - CONVULSIVE THRESHOLD LOWERED [None]
